FAERS Safety Report 8593612-5 (Version None)
Quarter: 2012Q3

REPORT INFORMATION
  Report Type: 
  Country: None (occurrence: None)
  Receive Date: 20120814
  Receipt Date: 20120808
  Transmission Date: 20120928
  Serious: Yes (Hospitalization, Other)
  Sender: FDA-Public Use
  Company Number: US-ROCHE-1061220

PATIENT
  Sex: Female
  Weight: 77.18 kg

DRUGS (5)
  1. ACCUTANE [Suspect]
     Dates: start: 20001004
  2. ACCUTANE [Suspect]
     Dates: start: 20000805
  3. ACCUTANE [Suspect]
     Dates: start: 20001004
  4. ACCUTANE [Suspect]
     Indication: PRODUCT USED FOR UNKNOWN INDICATION
     Dates: start: 20000303, end: 20000815
  5. ACCUTANE [Suspect]
     Dates: start: 20000606

REACTIONS (8)
  - INFLAMMATORY BOWEL DISEASE [None]
  - ANXIETY [None]
  - INTESTINAL OBSTRUCTION [None]
  - IRRITABLE BOWEL SYNDROME [None]
  - BLOOD TRIGLYCERIDES INCREASED [None]
  - DRY SKIN [None]
  - DEPRESSION [None]
  - CROHN'S DISEASE [None]
